FAERS Safety Report 9670844 (Version 1)
Quarter: 2013Q4

REPORT INFORMATION
  Report Type: Spontaneous
  Country: US (occurrence: None)
  Receive Date: 20131105
  Receipt Date: 20131105
  Transmission Date: 20140711
  Serious: No
  Sender: FDA-Public Use
  Company Number: None

PATIENT
  Age: 50 Year
  Sex: Male
  Weight: 90.72 kg

DRUGS (1)
  1. FLUTICASONE PROPIONATE [Suspect]
     Indication: RHINITIS ALLERGIC
     Dosage: 2 SPRASY/NOSTRIL
     Route: 055
     Dates: start: 20130902, end: 20131031

REACTIONS (3)
  - Medication error [None]
  - Dyspnoea [None]
  - Product substitution issue [None]
